FAERS Safety Report 9242063 (Version 1)
Quarter: 2013Q2

REPORT INFORMATION
  Report Type: Spontaneous
  Country: ES (occurrence: ES)
  Receive Date: 20130419
  Receipt Date: 20130419
  Transmission Date: 20140414
  Serious: Yes (Other)
  Sender: FDA-Public Use
  Company Number: ES-JNJFOC-20130405950

PATIENT
  Sex: Female

DRUGS (3)
  1. TOPAMAX [Suspect]
     Indication: PERSONALITY DISORDER
     Route: 048
  2. TOPAMAX [Suspect]
     Indication: PERSONALITY DISORDER
     Route: 048
     Dates: start: 2010, end: 201303
  3. DULOXETINE [Concomitant]
     Indication: PERSONALITY DISORDER
     Route: 065
     Dates: start: 2003

REACTIONS (3)
  - Exposure during pregnancy [Not Recovered/Not Resolved]
  - Withdrawal syndrome [Unknown]
  - Off label use [Not Recovered/Not Resolved]
